FAERS Safety Report 20719926 (Version 1)
Quarter: 2022Q2

REPORT INFORMATION
  Report Type: Report from Study
  Country: MX (occurrence: MX)
  Receive Date: 20220418
  Receipt Date: 20220418
  Transmission Date: 20220720
  Serious: Yes (Other)
  Sender: FDA-Public Use
  Company Number: MX-NOVARTISPH-NVSC2022MX089516

PATIENT
  Sex: Female
  Weight: 60 kg

DRUGS (2)
  1. EXFORGE [Suspect]
     Active Substance: AMLODIPINE BESYLATE\VALSARTAN
     Indication: Hypertension
     Dosage: 1 DOSAGE FORM, QD (BY MOUTH)
     Route: 048
     Dates: start: 2015
  2. EXFORGE [Suspect]
     Active Substance: AMLODIPINE BESYLATE\VALSARTAN
     Dosage: 2 DOSAGE FORM, QD, BY MOUTH (STARTED 3 MONTHS AGO APPROXIMATELY)
     Route: 048

REACTIONS (4)
  - Sjogren^s syndrome [Unknown]
  - Hypertension [Unknown]
  - Eye disorder [Unknown]
  - Incorrect dose administered [Unknown]
